FAERS Safety Report 23981862 (Version 4)
Quarter: 2025Q1

REPORT INFORMATION
  Report Type: Report from Study
  Country: CA (occurrence: CA)
  Receive Date: 20240617
  Receipt Date: 20250210
  Transmission Date: 20250409
  Serious: Yes (Other)
  Sender: SANDOZ
  Company Number: CA-002147023-NVSC2022CA189450

PATIENT
  Sex: Female

DRUGS (8)
  1. HYRIMOZ [Suspect]
     Active Substance: ADALIMUMAB-ADAZ
     Dosage: 40 MG, Q2W
     Route: 058
  2. HYRIMOZ [Suspect]
     Active Substance: ADALIMUMAB-ADAZ
     Indication: Ankylosing spondylitis
     Dosage: 40 MG, BIW
     Route: 058
     Dates: start: 20220511
  3. FOLIC ACID [Concomitant]
     Active Substance: FOLIC ACID
     Indication: Product used for unknown indication
     Route: 065
  4. METHOTREXATE [Concomitant]
     Active Substance: METHOTREXATE
     Indication: Product used for unknown indication
     Route: 065
  5. NAPROXEN [Concomitant]
     Active Substance: NAPROXEN
     Indication: Product used for unknown indication
     Route: 065
  6. PREGABALIN [Concomitant]
     Active Substance: PREGABALIN
     Indication: Product used for unknown indication
     Route: 065
  7. SODIUM TETRADECYL SULFATE [Concomitant]
     Active Substance: SODIUM TETRADECYL SULFATE
     Indication: Product used for unknown indication
     Route: 065
  8. SULFASALAZINE [Concomitant]
     Active Substance: SULFASALAZINE
     Indication: Product used for unknown indication
     Route: 065

REACTIONS (11)
  - Ankylosing spondylitis [Unknown]
  - Nephrolithiasis [Unknown]
  - Crohn^s disease [Unknown]
  - Diverticulitis [Unknown]
  - Fibromyalgia [Unknown]
  - Fatigue [Unknown]
  - Furuncle [Unknown]
  - Infection [Unknown]
  - Injection site pain [Unknown]
  - Bronchitis [Unknown]
  - Sinusitis [Unknown]
